FAERS Safety Report 20348737 (Version 1)
Quarter: 2022Q1

REPORT INFORMATION
  Report Type: Report from Study
  Country: IT (occurrence: IT)
  Receive Date: 20220119
  Receipt Date: 20220119
  Transmission Date: 20220423
  Serious: Yes (Other)
  Sender: FDA-Public Use
  Company Number: IT-UCBSA-2022001220

PATIENT
  Sex: Male

DRUGS (4)
  1. ROTIGOTINE [Suspect]
     Active Substance: ROTIGOTINE
     Indication: Product used for unknown indication
     Dosage: 2 MILLIGRAM, ONCE DAILY (QD)
     Dates: end: 202112
  2. ASPIRIN [Concomitant]
     Active Substance: ASPIRIN
     Indication: Cerebrovascular insufficiency
     Dosage: 100 MILLIGRAM, UNK
  3. CHOLINE ALFOSCERATE [Concomitant]
     Active Substance: CHOLINE ALFOSCERATE
     Indication: Cerebrovascular insufficiency
  4. DONEPEZIL [Concomitant]
     Active Substance: DONEPEZIL
     Indication: Cerebrovascular insufficiency

REACTIONS (2)
  - Joint effusion [Recovering/Resolving]
  - Insomnia [Recovering/Resolving]
